FAERS Safety Report 10635913 (Version 2)
Quarter: 2014Q4

REPORT INFORMATION
  Report Type: Spontaneous
  Country: US (occurrence: US)
  Receive Date: 20141205
  Receipt Date: 20141211
  Transmission Date: 20150529
  Serious: Yes (Other)
  Sender: FDA-Public Use
  Company Number: US-PFIZER INC-2014329800

PATIENT
  Age: 26 Year
  Sex: Female
  Weight: 83 kg

DRUGS (5)
  1. TOFACITINIB CITRATE [Concomitant]
     Active Substance: TOFACITINIB CITRATE
     Indication: PSORIASIS
     Dosage: 10 MG, 2X/DAY
     Route: 048
     Dates: start: 20120912, end: 2014
  2. FEXOFENADINE [Concomitant]
     Active Substance: FEXOFENADINE\FEXOFENADINE HYDROCHLORIDE
     Indication: SEASONAL ALLERGY
     Dosage: 150 MG, DAILY
     Route: 048
     Dates: start: 20140526
  3. METFORMIN [Concomitant]
     Active Substance: METFORMIN HYDROCHLORIDE
     Indication: TYPE 2 DIABETES MELLITUS
     Dosage: 500 MG, DAILY
     Route: 048
     Dates: start: 20120417
  4. MEDROXYPROGESTERONE ACETATE. [Suspect]
     Active Substance: MEDROXYPROGESTERONE ACETATE
     Indication: CONTRACEPTION
     Dosage: 150 MG, Q3 MONTHS
     Route: 030
     Dates: start: 201102
  5. TYLENOL [Concomitant]
     Active Substance: ACETAMINOPHEN
     Indication: HEADACHE
     Dosage: 325 MG, DAILY PRN
     Route: 048
     Dates: start: 20120210

REACTIONS (2)
  - Unintended pregnancy [Unknown]
  - Drug ineffective [Unknown]

NARRATIVE: CASE EVENT DATE: 20141017
